FAERS Safety Report 8568869-7 (Version None)
Quarter: 2012Q3

REPORT INFORMATION
  Report Type: 
  Country: None (occurrence: None)
  Receive Date: 20120803
  Receipt Date: 20120407
  Transmission Date: 20120928
  Serious: No
  Sender: FDA-Public Use
  Company Number: US-ABBOTT-12P-163-0922637-00

PATIENT
  Sex: Female

DRUGS (1)
  1. NIASPAN [Suspect]
     Indication: PRODUCT USED FOR UNKNOWN INDICATION
     Dosage: 1 PO AT BEDTIME
     Route: 048
     Dates: start: 20120406

REACTIONS (3)
  - ANXIETY [None]
  - FLUSHING [None]
  - CHEST DISCOMFORT [None]
